FAERS Safety Report 6933595-4 (Version None)
Quarter: 2010Q3

REPORT INFORMATION
  Report Type: 
  Country: None (occurrence: None)
  Receive Date: 20100820
  Receipt Date: 20100810
  Transmission Date: 20110219
  Serious: Yes (Other)
  Sender: FDA-Public Use
  Company Number: US-ABBOTT-10P-163-0662757-00

PATIENT
  Sex: Female

DRUGS (2)
  1. LUPRON DEPOT [Suspect]
     Indication: PRODUCT USED FOR UNKNOWN INDICATION
     Dates: end: 20000101
  2. VITAMIN D [Concomitant]
     Indication: PRODUCT USED FOR UNKNOWN INDICATION

REACTIONS (15)
  - ABDOMINAL DISTENSION [None]
  - APPETITE DISORDER [None]
  - BEDRIDDEN [None]
  - BLADDER SPASM [None]
  - CHEST DISCOMFORT [None]
  - CYSTITIS INTERSTITIAL [None]
  - FEELING ABNORMAL [None]
  - GOITRE [None]
  - HYSTERECTOMY [None]
  - NEPHROLITHIASIS [None]
  - PAIN [None]
  - PALPITATIONS [None]
  - SENSORY DISTURBANCE [None]
  - UNEVALUABLE EVENT [None]
  - URETERAL SPASM [None]
